FAERS Safety Report 10597146 (Version 2)
Quarter: 2014Q4

REPORT INFORMATION
  Report Type: Spontaneous
  Country: GB (occurrence: GB)
  Receive Date: 20141121
  Receipt Date: 20141121
  Transmission Date: 20150529
  Serious: Yes (Other)
  Sender: FDA-Public Use
  Company Number: GB-009507513-1410GBR008744

PATIENT
  Sex: Female

DRUGS (1)
  1. NEXPLANON [Suspect]
     Active Substance: ETONOGESTREL
     Dosage: DOSE AND FREQUENCY WAS REPORTED AS ^SRAT^
     Route: 058
     Dates: start: 20140409, end: 20141013

REACTIONS (2)
  - Menorrhagia [Recovering/Resolving]
  - Drug administered to patient of inappropriate age [Unknown]

NARRATIVE: CASE EVENT DATE: 20140409
